FAERS Safety Report 13603706 (Version 6)
Quarter: 2017Q3

REPORT INFORMATION
  Report Type: Report from Study
  Country: CA (occurrence: CA)
  Receive Date: 20170602
  Receipt Date: 20170920
  Transmission Date: 20171127
  Serious: Yes (Other)
  Sender: FDA-Public Use
  Company Number: CA-ROCHE-1638435

PATIENT
  Age: 70 Year
  Sex: Female

DRUGS (12)
  1. MORPHINE [Concomitant]
     Active Substance: MORPHINE
  2. TEMAZEPAM. [Concomitant]
     Active Substance: TEMAZEPAM
  3. PLAVIX [Concomitant]
     Active Substance: CLOPIDOGREL BISULFATE
  4. SYNTHROID [Concomitant]
     Active Substance: LEVOTHYROXINE SODIUM
  5. FISH OIL [Concomitant]
     Active Substance: FISH OIL
  6. GABAPENTINE [Concomitant]
     Active Substance: GABAPENTIN
  7. SIMVASTATIN. [Concomitant]
     Active Substance: SIMVASTATIN
  8. OXYCOCET [Concomitant]
     Active Substance: ACETAMINOPHEN\OXYCODONE HYDROCHLORIDE
  9. ACTEMRA [Suspect]
     Active Substance: TOCILIZUMAB
     Indication: RHEUMATOID ARTHRITIS
     Dosage: SUSPENDED
     Route: 042
     Dates: start: 20150720
  10. PANTOPRAZOLE [Concomitant]
     Active Substance: PANTOPRAZOLE
  11. RAMIPRIL. [Concomitant]
     Active Substance: RAMIPRIL
  12. ACTEMRA [Suspect]
     Active Substance: TOCILIZUMAB
     Route: 042
     Dates: start: 20160120

REACTIONS (25)
  - Complication associated with device [Not Recovered/Not Resolved]
  - Arthralgia [Not Recovered/Not Resolved]
  - Thrombosis [Recovering/Resolving]
  - Injection site extravasation [Unknown]
  - Oxygen saturation decreased [Unknown]
  - Medication error [Unknown]
  - Injection site extravasation [Recovered/Resolved]
  - Pain in extremity [Unknown]
  - Blood pressure systolic increased [Unknown]
  - Osteomyelitis [Not Recovered/Not Resolved]
  - Ill-defined disorder [Not Recovered/Not Resolved]
  - Joint swelling [Unknown]
  - Ejection fraction decreased [Unknown]
  - Blood pressure increased [Unknown]
  - Nasopharyngitis [Not Recovered/Not Resolved]
  - Postoperative wound infection [Not Recovered/Not Resolved]
  - Chest pain [Unknown]
  - Underdose [Unknown]
  - Blood pressure systolic increased [Unknown]
  - Rheumatoid arthritis [Not Recovered/Not Resolved]
  - Peripheral swelling [Unknown]
  - Blood pressure increased [Unknown]
  - Foot deformity [Unknown]
  - Cyst [Not Recovered/Not Resolved]
  - Joint abscess [Not Recovered/Not Resolved]

NARRATIVE: CASE EVENT DATE: 20150923
